FAERS Safety Report 21303880 (Version 2)
Quarter: 2022Q3

REPORT INFORMATION
  Report Type: Spontaneous
  Country: US (occurrence: US)
  Receive Date: 20220907
  Receipt Date: 20220920
  Transmission Date: 20221027
  Serious: Yes (Hospitalization, Other)
  Sender: FDA-Public Use
  Company Number: US-MLMSERVICE-20220824-3752862-1

PATIENT
  Age: 71 Year
  Sex: Female

DRUGS (6)
  1. FUROSEMIDE [Suspect]
     Active Substance: FUROSEMIDE
     Indication: Oedema
     Dosage: AFTER CYCLE 3
     Route: 065
     Dates: start: 2020, end: 20210125
  2. CYCLOPHOSPHAMIDE [Suspect]
     Active Substance: CYCLOPHOSPHAMIDE
     Indication: Primary amyloidosis
     Dosage: 3 CYCLICAL, CYBORD REGIMEN
     Route: 065
     Dates: start: 20201028
  3. SULFAMETHOXAZOLE AND TRIMETHOPRIM [Suspect]
     Active Substance: SULFAMETHOXAZOLE\TRIMETHOPRIM
     Dosage: 3 CYCLE
     Route: 065
     Dates: start: 2020, end: 20210125
  4. DEXAMETHASONE [Concomitant]
     Active Substance: DEXAMETHASONE
     Indication: Primary amyloidosis
     Dosage: 3 CYCLICAL, CYBORD REGIMEN
     Route: 065
     Dates: start: 20201028
  5. BORTEZOMIB [Concomitant]
     Active Substance: BORTEZOMIB
     Indication: Primary amyloidosis
     Dosage: 3 CYCLICAL, CYBORD REGIMEN
     Route: 065
     Dates: start: 20201028
  6. ACYCLOVIR [Concomitant]
     Active Substance: ACYCLOVIR
     Dosage: 3 CYCLES
     Route: 065

REACTIONS (11)
  - Acute kidney injury [Recovered/Resolved]
  - Drug reaction with eosinophilia and systemic symptoms [Recovered/Resolved]
  - Pyrexia [Recovered/Resolved]
  - Rash pruritic [Recovered/Resolved]
  - Dermatitis bullous [Recovered/Resolved]
  - Erythema [Recovered/Resolved]
  - Lymphadenopathy [Recovered/Resolved]
  - Oedema peripheral [Recovered/Resolved]
  - Sterile pyuria [Recovered/Resolved]
  - Tubulointerstitial nephritis [Recovered/Resolved]
  - Hepatic enzyme increased [Recovered/Resolved]

NARRATIVE: CASE EVENT DATE: 20210125
